FAERS Safety Report 4355257-2 (Version None)
Quarter: 2004Q2

REPORT INFORMATION
  Report Type: 
  Country: None (occurrence: None)
  Receive Date: 20040504
  Receipt Date: 20040419
  Transmission Date: 20050107
  Serious: Yes (Hospitalization, Disabling, Other)
  Sender: FDA-Public Use
  Company Number: WAES 0403GBR00006

PATIENT
  Age: 66 Year
  Sex: Female

DRUGS (1)
  1. LACRISERT [Suspect]
     Indication: KERATOCONJUNCTIVITIS SICCA
     Dosage: 5 MG/DAILY
     Route: 047
     Dates: start: 19920101, end: 20040113

REACTIONS (5)
  - BACTERIAL INFECTION [None]
  - BLINDNESS UNILATERAL [None]
  - CATARACT [None]
  - CATARACT OPERATION COMPLICATION [None]
  - ENDOPHTHALMITIS [None]
